FAERS Safety Report 5032219-3 (Version None)
Quarter: 2006Q2

REPORT INFORMATION
  Report Type: 
  Country: None (occurrence: None)
  Receive Date: 20060619
  Receipt Date: 20060606
  Transmission Date: 20061013
  Serious: Yes (Death)
  Sender: FDA-Public Use
  Company Number: HQWYE032808JUN06

PATIENT
  Age: 27 Year
  Sex: Male

DRUGS (3)
  1. RAPAMUNE [Suspect]
     Indication: GRAFT VERSUS HOST DISEASE
     Dosage: 3 MG 1X PER 1 DAY, ORAL
     Route: 048
  2. VORICONAZOLE (VORICONAZOLE) [Concomitant]
  3. TACROLIMUS (TACROLIMUS) [Concomitant]

REACTIONS (10)
  - BLOOD CREATININE INCREASED [None]
  - BRONCHIAL OBSTRUCTION [None]
  - BRONCHOPNEUMONIA [None]
  - CATHETER RELATED INFECTION [None]
  - COAGULOPATHY [None]
  - PULMONARY ALVEOLAR HAEMORRHAGE [None]
  - PULMONARY EMBOLISM [None]
  - RESPIRATORY DISORDER [None]
  - SEPTIC EMBOLUS [None]
  - STAPHYLOCOCCAL SEPSIS [None]
